FAERS Safety Report 4594320-8 (Version None)
Quarter: 2005Q1

REPORT INFORMATION
  Report Type: 
  Country: None (occurrence: None)
  Receive Date: 20050301
  Receipt Date: 20041005
  Transmission Date: 20050727
  Serious: No
  Sender: FDA-Public Use
  Company Number: US-GLAXOSMITHKLINE-A0528559A

PATIENT
  Sex: Female

DRUGS (3)
  1. VALTREX [Suspect]
     Dosage: 500MG TWICE PER DAY
     Route: 048
  2. LO/OVRAL [Concomitant]
  3. PERCOCET [Concomitant]

REACTIONS (3)
  - CAUSTIC INJURY [None]
  - DRUG INEFFECTIVE [None]
  - LOCAL SWELLING [None]
